FAERS Safety Report 12073172 (Version 1)
Quarter: 2016Q1

REPORT INFORMATION
  Report Type: Spontaneous
  Country: US (occurrence: None)
  Receive Date: 20160211
  Receipt Date: 20160211
  Transmission Date: 20160526
  Serious: Yes (Other)
  Sender: FDA-Public Use
  Company Number: None

PATIENT
  Age: 52 Year
  Sex: Male
  Weight: 104.33 kg

DRUGS (2)
  1. THE ORIGINAL NATURAL HERB COUGH DROPS [Suspect]
     Active Substance: MENTHOL
     Indication: OROPHARYNGEAL PAIN
     Dates: start: 20160201, end: 20160209
  2. MULTI-VITAMINS [Concomitant]

REACTIONS (11)
  - Asthenia [None]
  - Product formulation issue [None]
  - Headache [None]
  - Peripheral coldness [None]
  - Lethargy [None]
  - Feeling hot [None]
  - Rash [None]
  - Dizziness [None]
  - Irritability [None]
  - Dyspnoea [None]
  - Nervousness [None]

NARRATIVE: CASE EVENT DATE: 20160209
